FAERS Safety Report 7955065-7 (Version None)
Quarter: 2011Q4

REPORT INFORMATION
  Report Type: 
  Country: None (occurrence: None)
  Receive Date: 20111202
  Receipt Date: 20111128
  Transmission Date: 20120403
  Serious: Yes (Life-Threatening, Other)
  Sender: FDA-Public Use
  Company Number: US-BAYER-2011-019513

PATIENT
  Age: 32 Year
  Sex: Female
  Weight: 170.7 kg

DRUGS (16)
  1. HYDROCHLOROTHIAZIDE [Concomitant]
     Indication: OEDEMA
     Dosage: 25 MG, UNK
     Route: 048
  2. FOSAMAX [Concomitant]
     Indication: OSTEOPOROSIS PROPHYLAXIS
     Dosage: 70 MG, UNK
     Route: 048
  3. YASMIN [Suspect]
     Indication: CONTRACEPTION
     Dosage: UNK
     Dates: start: 20050112, end: 20080412
  4. GABAPENTIN [Concomitant]
     Indication: CONVULSION
     Dosage: 600 MG, UNK
     Route: 048
  5. TRAZODONE HCL [Concomitant]
     Indication: DEPRESSION
     Dosage: 150 MG, UNK
     Route: 048
  6. YAZ [Suspect]
     Indication: CONTRACEPTION
     Dosage: UNK
     Dates: start: 20080602, end: 20090106
  7. CHANTIX [Concomitant]
     Indication: EX-TOBACCO USER
     Dosage: UNK
     Route: 048
     Dates: start: 20070101
  8. ALBUTEROL [Concomitant]
     Indication: ASTHMA
     Dosage: 90 UNK, UNK
     Route: 045
     Dates: start: 20061201, end: 20070101
  9. ABILIFY [Concomitant]
     Indication: DEPRESSION
     Dosage: 20 MG, UNK
     Route: 048
  10. METFORMIN HCL [Concomitant]
     Indication: DIABETES MELLITUS
     Dosage: 500 MG, UNK
     Route: 048
  11. EFFEXOR XR [Concomitant]
     Indication: DEPRESSION
     Dosage: 75 MG, UNK
     Route: 048
  12. METOPROLOL TARTRATE [Concomitant]
     Indication: HYPERTENSION
     Dosage: 50 MG, UNK
     Route: 048
  13. GABAPENTIN [Concomitant]
     Indication: AFFECTIVE DISORDER
  14. CYMBALTA [Concomitant]
     Dosage: 60 MG, UNK
     Route: 048
  15. GEODON [Concomitant]
     Indication: SCHIZOPHRENIA
     Dosage: 80 MG, UNK
     Route: 048
  16. CYMBALTA [Concomitant]
     Indication: DEPRESSION
     Dosage: 30 MG, UNK
     Route: 048

REACTIONS (7)
  - CHOLELITHIASIS [None]
  - EMOTIONAL DISTRESS [None]
  - INJURY [None]
  - PAIN [None]
  - ANXIETY [None]
  - CHOLECYSTITIS CHRONIC [None]
  - FEAR [None]
